FAERS Safety Report 8925830 (Version 1)
Quarter: 2012Q4

REPORT INFORMATION
  Report Type: 
  Country: ES (occurrence: ES)
  Receive Date: 20121126
  Receipt Date: 20121126
  Transmission Date: 20130627
  Serious: Yes (Other)
  Sender: FDA-Public Use
  Company Number: PHHY2012ES106827

PATIENT
  Age: 23 Year
  Sex: Male

DRUGS (2)
  1. MYFORTIC [Suspect]
     Indication: POLYARTHRITIS
     Dosage: 180 mg, daily
     Route: 048
     Dates: start: 20110912
  2. MYFORTIC [Suspect]
     Dosage: UNK UKN, UNK

REACTIONS (4)
  - Rhabdomyolysis [Unknown]
  - Blood creatine phosphokinase increased [Unknown]
  - Aspartate aminotransferase increased [Unknown]
  - Blood lactate dehydrogenase increased [Unknown]
